FAERS Safety Report 4871577-7 (Version None)
Quarter: 2005Q4

REPORT INFORMATION
  Report Type: 
  Country: None (occurrence: None)
  Receive Date: 20051230
  Receipt Date: 20051219
  Transmission Date: 20060501
  Serious: No
  Sender: FDA-Public Use
  Company Number: FR-2005-027137

PATIENT
  Age: 50 Year
  Sex: Female

DRUGS (1)
  1. BETAFERON (INTERFERON BETA-1B) INJECTION, 250 UG [Suspect]
     Indication: MULTIPLE SCLEROSIS
     Dosage: 250 UG EVERY 2 D SUBCUTANEOUS
     Route: 058
     Dates: start: 19960101

REACTIONS (2)
  - BREAST CANCER FEMALE [None]
  - BREAST CANCER METASTATIC [None]
